FAERS Safety Report 4354292-8 (Version None)
Quarter: 2004Q2

REPORT INFORMATION
  Report Type: 
  Country: None (occurrence: None)
  Receive Date: 20040503
  Receipt Date: 20030310
  Transmission Date: 20050107
  Serious: Yes (Other)
  Sender: FDA-Public Use
  Company Number: PHEH2003US02195

PATIENT
  Age: 72 Year
  Sex: Male
  Weight: 58 kg

DRUGS (5)
  1. DIOVAN HCT [Suspect]
     Indication: HYPERTENSION
     Dosage: 160 MG VALS/12.5MG HCT, DAILY,ORAL
     Route: 048
     Dates: start: 20000725, end: 20030130
  2. FLOMAX [Concomitant]
  3. GLUCOVANCE [Concomitant]
  4. TRICOR [Concomitant]
  5. ATENOLOL [Concomitant]

REACTIONS (1)
  - ANGIONEUROTIC OEDEMA [None]
